FAERS Safety Report 4887242-6 (Version None)
Quarter: 2005Q4

REPORT INFORMATION
  Report Type: 
  Country: None (occurrence: None)
  Receive Date: 20051221
  Receipt Date: 20050825
  Transmission Date: 20060501
  Serious: No
  Sender: FDA-Public Use
  Company Number: US-YAMANOUCHI-YPA20050451

PATIENT
  Age: 66 Year
  Sex: Male

DRUGS (3)
  1. VESICARE [Suspect]
     Indication: POLLAKIURIA
     Dosage: 5 MG PO
     Route: 048
     Dates: start: 20050823
  2. DIABETES MEDICATION [Concomitant]
  3. BLOOD PRESSURE MEDICATION [Concomitant]

REACTIONS (1)
  - DRUG INEFFECTIVE [None]
